FAERS Safety Report 5939246-X (Version None)
Quarter: 2008Q4

REPORT INFORMATION
  Report Type: 
  Country: None (occurrence: None)
  Receive Date: 20081103
  Receipt Date: 20081022
  Transmission Date: 20090506
  Serious: Yes (Death, Other)
  Sender: FDA-Public Use
  Company Number: GB-PFIZER INC-2008075879

PATIENT
  Sex: Male
  Weight: 86 kg

DRUGS (3)
  1. SUTENT [Suspect]
     Indication: RENAL CANCER
     Route: 048
     Dates: start: 20070711
  2. INTERFERON [Concomitant]
  3. DEXAMETHASONE 0.5MG TAB [Concomitant]
     Dates: start: 20070620

REACTIONS (19)
  - ASTHENIA [None]
  - BREATH SOUNDS ABNORMAL [None]
  - BRONCHOPNEUMONIA [None]
  - CIRCULATORY COLLAPSE [None]
  - CONFUSIONAL STATE [None]
  - DYSPNOEA [None]
  - GASTROOESOPHAGEAL REFLUX DISEASE [None]
  - INCONTINENCE [None]
  - MALAISE [None]
  - OEDEMA [None]
  - ORAL CANDIDIASIS [None]
  - ORAL PAIN [None]
  - PALLOR [None]
  - PURPURA [None]
  - RENAL CANCER [None]
  - SEPSIS [None]
  - SOMNOLENCE [None]
  - URINE ODOUR ABNORMAL [None]
  - WEIGHT DECREASED [None]
